FAERS Safety Report 14411635 (Version 2)
Quarter: 2018Q1

REPORT INFORMATION
  Report Type: Report from Study
  Country: US (occurrence: US)
  Receive Date: 20180119
  Receipt Date: 20180207
  Transmission Date: 20180509
  Serious: Yes (Hospitalization, Other)
  Sender: FDA-Public Use
  Company Number: US-GILEAD-2018-0316141

PATIENT
  Age: 84 Year
  Sex: Female

DRUGS (27)
  1. AMBRISENTAN [Suspect]
     Active Substance: AMBRISENTAN
     Indication: CHRONIC OBSTRUCTIVE PULMONARY DISEASE
  2. MIRTAZAPINE. [Concomitant]
     Active Substance: MIRTAZAPINE
  3. AMBRISENTAN [Suspect]
     Active Substance: AMBRISENTAN
     Indication: PULMONARY ARTERIAL HYPERTENSION
     Dosage: 10 MG, QD
     Route: 048
     Dates: start: 201106, end: 201712
  4. AMBRISENTAN [Suspect]
     Active Substance: AMBRISENTAN
     Indication: CONNECTIVE TISSUE DISORDER
     Dosage: 5 MG, QD
     Route: 048
     Dates: start: 201105, end: 201106
  5. LASIX [Concomitant]
     Active Substance: FUROSEMIDE
  6. IRON [Concomitant]
     Active Substance: IRON
  7. PAXIL [Concomitant]
     Active Substance: PAROXETINE HYDROCHLORIDE
  8. SENNOSIDES A+B [Concomitant]
     Active Substance: SENNOSIDES A AND B
  9. SILDENAFIL. [Concomitant]
     Active Substance: SILDENAFIL
  10. LOSARTAN. [Concomitant]
     Active Substance: LOSARTAN
  11. AMBRISENTAN [Suspect]
     Active Substance: AMBRISENTAN
     Indication: HEART DISEASE CONGENITAL
     Dosage: 10 MG, QD
     Route: 048
     Dates: end: 20180110
  12. GABAPENTIN. [Concomitant]
     Active Substance: GABAPENTIN
  13. TRAMADOL. [Concomitant]
     Active Substance: TRAMADOL
  14. ADVAIR HFA [Concomitant]
     Active Substance: FLUTICASONE PROPIONATE\SALMETEROL XINAFOATE
  15. VITAMINS WITH MINERALS [Concomitant]
     Active Substance: MINERALS\VITAMINS
  16. K-TAB [Concomitant]
     Active Substance: POTASSIUM CHLORIDE
  17. CLONAZEPAM. [Concomitant]
     Active Substance: CLONAZEPAM
  18. DOXYCYCLINE. [Concomitant]
     Active Substance: DOXYCYCLINE
  19. MOTRIN [Concomitant]
     Active Substance: IBUPROFEN
  20. OXYGEN. [Concomitant]
     Active Substance: OXYGEN
  21. AMBRISENTAN [Suspect]
     Active Substance: AMBRISENTAN
     Indication: SJOGREN^S SYNDROME
  22. LEVOTHYROXINE. [Concomitant]
     Active Substance: LEVOTHYROXINE
  23. LACTINEX                           /00079701/ [Concomitant]
  24. ASPIRIN                            /00002701/ [Concomitant]
     Active Substance: ASPIRIN
  25. CARTIA                             /00002701/ [Concomitant]
     Active Substance: ASPIRIN
  26. OMEPRAZOLE. [Concomitant]
     Active Substance: OMEPRAZOLE
  27. LORAZEPAM. [Concomitant]
     Active Substance: LORAZEPAM

REACTIONS (8)
  - Pneumonia pseudomonal [Recovered/Resolved]
  - Cardiac failure congestive [Recovered/Resolved]
  - Mental status changes [Unknown]
  - Metabolic encephalopathy [Unknown]
  - Infection [Unknown]
  - Acute respiratory failure [Unknown]
  - Pyrexia [Unknown]
  - Product supply issue [Unknown]

NARRATIVE: CASE EVENT DATE: 20171227
